FAERS Safety Report 15757359 (Version 2)
Quarter: 2019Q2

REPORT INFORMATION
  Report Type: Report from Study
  Country: US (occurrence: US)
  Receive Date: 20181224
  Receipt Date: 20190506
  Transmission Date: 20190711
  Serious: Yes (Death, Hospitalization)
  Sender: FDA-Public Use
  Company Number: US-OTSUKA-2018_039641

PATIENT
  Age: 90 Year
  Sex: Female

DRUGS (2)
  1. TOLVAPTAN [Suspect]
     Active Substance: TOLVAPTAN
     Indication: HYPONATRAEMIA
     Dosage: 15 MG, QD
     Route: 048
  2. TOLVAPTAN [Suspect]
     Active Substance: TOLVAPTAN
     Indication: BLOOD OSMOLARITY DECREASED
     Dosage: 15 MG, BIW (1 TABLET BY MOUTH EVERY TUESDAY AND THURSDAY)
     Route: 048
     Dates: start: 2011

REACTIONS (8)
  - Asthenia [Unknown]
  - Death [Fatal]
  - Blood potassium decreased [Unknown]
  - Depressed mood [Unknown]
  - Diarrhoea [Unknown]
  - Urinary tract infection [Unknown]
  - Pneumonia [Unknown]
  - Inappropriate schedule of product administration [Unknown]

NARRATIVE: CASE EVENT DATE: 201811
